FAERS Safety Report 7676096-0 (Version None)
Quarter: 2011Q3

REPORT INFORMATION
  Report Type: 
  Country: None (occurrence: None)
  Receive Date: 20110811
  Receipt Date: 20110808
  Transmission Date: 20111222
  Serious: Yes (Other)
  Sender: FDA-Public Use
  Company Number: PHHY2011HR71251

PATIENT
  Age: 71 Year
  Sex: Female

DRUGS (6)
  1. OXAZEPAM [Concomitant]
  2. FEMARA [Suspect]
     Indication: BREAST CANCER
     Dosage: 2.5 MG, QD
     Route: 048
     Dates: start: 20050301
  3. BONEFOS [Concomitant]
     Indication: NEOPLASM MALIGNANT
     Dosage: UNK
     Dates: start: 20091101
  4. MONOPRIL [Concomitant]
     Indication: HYPERTENSION
     Dosage: 20 MG, QD
     Dates: start: 20050101
  5. PLIVIT D3 [Concomitant]
     Dosage: 4 DROPS ONCE DAILY
  6. HYGROTON [Concomitant]
     Indication: HYPERTENSION
     Dosage: 25 MG, QD
     Dates: start: 20050101

REACTIONS (2)
  - PARAESTHESIA [None]
  - SENSORY LOSS [None]
